FAERS Safety Report 6942915-6 (Version None)
Quarter: 2010Q3

REPORT INFORMATION
  Report Type: 
  Country: None (occurrence: None)
  Receive Date: 20100826
  Receipt Date: 20100824
  Transmission Date: 20110219
  Serious: Yes (Death)
  Sender: FDA-Public Use
  Company Number: CO-ROCHE-723014

PATIENT
  Sex: Male

DRUGS (2)
  1. AVASTIN [Suspect]
     Indication: COLORECTAL CANCER
     Dosage: FREQUENCY: Q30DAYS. LAST INFUSION : 24 JUNE 2010.
     Route: 042
     Dates: start: 20100105, end: 20100624
  2. XELODA [Suspect]
     Indication: COLORECTAL CANCER
     Dosage: FREQUENCY: QD.
     Route: 048
     Dates: start: 20100115, end: 20100726

REACTIONS (1)
  - MALIGNANT NEOPLASM PROGRESSION [None]
